APPROVED DRUG PRODUCT: NAPROXEN
Active Ingredient: NAPROXEN
Strength: 25MG/ML
Dosage Form/Route: SUSPENSION;ORAL
Application: A216504 | Product #001 | TE Code: AB
Applicant: AUROBINDO PHARMA LTD
Approved: Oct 3, 2025 | RLD: No | RS: No | Type: RX